FAERS Safety Report 17355563 (Version 1)
Quarter: 2020Q1

REPORT INFORMATION
  Report Type: Report from Study
  Country: RU (occurrence: RU)
  Receive Date: 20200131
  Receipt Date: 20200131
  Transmission Date: 20200409
  Serious: Yes (Other)
  Sender: FDA-Public Use
  Company Number: NVSC2020RU012710

PATIENT
  Sex: Female

DRUGS (2)
  1. TRAMETINIB [Suspect]
     Active Substance: TRAMETINIB
     Indication: PRODUCT USED FOR UNKNOWN INDICATION
     Dosage: UNK
     Route: 048
     Dates: start: 201912
  2. DABRAFENIB [Suspect]
     Active Substance: DABRAFENIB
     Indication: PRODUCT USED FOR UNKNOWN INDICATION
     Dosage: UNK
     Route: 048
     Dates: start: 201912

REACTIONS (5)
  - Anuria [Recovered/Resolved]
  - Chills [Recovered/Resolved]
  - Body temperature increased [Recovered/Resolved]
  - Angioedema [Recovered/Resolved]
  - Blood pressure decreased [Recovered/Resolved]
